FAERS Safety Report 13923579 (Version 5)
Quarter: 2018Q1

REPORT INFORMATION
  Report Type: Spontaneous
  Country: IT (occurrence: IT)
  Receive Date: 20170831
  Receipt Date: 20180110
  Transmission Date: 20180508
  Serious: Yes (Death)
  Sender: FDA-Public Use
  Company Number: IT-ROCHE-1984336

PATIENT
  Age: 61 Year
  Sex: Male
  Weight: 79 kg

DRUGS (15)
  1. ACETYLSALICYLIC ACID [Concomitant]
     Active Substance: ASPIRIN
  2. PREDNISONE. [Concomitant]
     Active Substance: PREDNISONE
  3. LANSOPRAZOLE. [Concomitant]
     Active Substance: LANSOPRAZOLE
  4. CANRENONE [Concomitant]
     Active Substance: CANRENONE
  5. LEVOFLOXACIN. [Concomitant]
     Active Substance: LEVOFLOXACIN
  6. TAMSULOSIN HYDROCHLORIDE. [Concomitant]
     Active Substance: TAMSULOSIN HYDROCHLORIDE
  7. PIRFENIDONE. [Suspect]
     Active Substance: PIRFENIDONE
     Indication: IDIOPATHIC PULMONARY FIBROSIS
     Dosage: CUMULATIVE DOSE: 130830 MG
     Route: 048
     Dates: start: 20170517, end: 20170822
  8. ALLOPURINOL. [Concomitant]
     Active Substance: ALLOPURINOL
  9. ACENOCOUMAROL [Concomitant]
     Active Substance: ACENOCOUMAROL
  10. BISOPROLOL [Concomitant]
     Active Substance: BISOPROLOL
  11. FUROSEMIDE. [Concomitant]
     Active Substance: FUROSEMIDE
  12. ATORVASTATIN [Concomitant]
     Active Substance: ATORVASTATIN
  13. ALPRAZOLAM. [Concomitant]
     Active Substance: ALPRAZOLAM
  14. SINTROM [Concomitant]
     Active Substance: ACENOCOUMAROL
     Dosage: 20 DOUBLE-SCORED TABLETS
     Route: 065
  15. DELTACORTENE [Concomitant]
     Active Substance: PREDNISONE

REACTIONS (1)
  - Neutropenia [Fatal]

NARRATIVE: CASE EVENT DATE: 20170822
